FAERS Safety Report 25574939 (Version 2)
Quarter: 2025Q3

REPORT INFORMATION
  Report Type: Spontaneous
  Country: US (occurrence: US)
  Receive Date: 20250718
  Receipt Date: 20250721
  Transmission Date: 20251021
  Serious: No
  Sender: GLAXOSMITHKLINE
  Company Number: US-GSK-US2025077919

PATIENT
  Age: 43 Year
  Sex: Female

DRUGS (1)
  1. BENLYSTA [Suspect]
     Active Substance: BELIMUMAB
     Indication: Systemic lupus erythematosus
     Dosage: 200 MG/ML, WE

REACTIONS (3)
  - Exposure via skin contact [Unknown]
  - Accidental exposure to product [Unknown]
  - Product complaint [Unknown]

NARRATIVE: CASE EVENT DATE: 20250620
